FAERS Safety Report 7540152-8 (Version None)
Quarter: 2011Q2

REPORT INFORMATION
  Report Type: 
  Country: None (occurrence: None)
  Receive Date: 20110610
  Receipt Date: 20110601
  Transmission Date: 20111010
  Serious: Yes (Hospitalization)
  Sender: FDA-Public Use
  Company Number: US-ASTRAZENECA-2011SE11605

PATIENT
  Age: 66 Year
  Sex: Male

DRUGS (4)
  1. SEROQUEL [Suspect]
     Route: 048
  2. PRILOSEC [Suspect]
     Route: 048
  3. CLONAZEPAM [Concomitant]
  4. NEXIUM [Concomitant]

REACTIONS (3)
  - OESOPHAGOGASTRIC FUNDOPLASTY [None]
  - DEMENTIA [None]
  - DELUSION [None]
